FAERS Safety Report 5081946-0 (Version None)
Quarter: 2006Q3

REPORT INFORMATION
  Report Type: 
  Country: None (occurrence: None)
  Receive Date: 20060811
  Receipt Date: 20060801
  Transmission Date: 20061208
  Serious: Yes (Death, Other)
  Sender: FDA-Public Use
  Company Number: GXKR2006GB04435

PATIENT
  Sex: Male
  Weight: 85 kg

DRUGS (5)
  1. ASPIRIN [Suspect]
     Indication: MYOCARDIAL ISCHAEMIA
     Dosage: 150 MG, QD, ORAL
     Route: 048
  2. ATENOLOL [Concomitant]
  3. GTN (GLYCERYL TRINITRATE) [Concomitant]
  4. AMLODIPINE BESYLATE [Concomitant]
  5. SIMVASTATIN [Concomitant]

REACTIONS (10)
  - CEREBROVASCULAR ACCIDENT [None]
  - GASTRIC ULCER [None]
  - HAEMOGLOBIN DECREASED [None]
  - HEART RATE DECREASED [None]
  - HELICOBACTER GASTRITIS [None]
  - HYPOTENSION [None]
  - LOSS OF CONSCIOUSNESS [None]
  - OEDEMA PERIPHERAL [None]
  - OESOPHAGEAL ULCER HAEMORRHAGE [None]
  - TRANSIENT ISCHAEMIC ATTACK [None]
